FAERS Safety Report 10029838 (Version 1)
Quarter: 2014Q1

REPORT INFORMATION
  Report Type: Spontaneous
  Country: US (occurrence: None)
  Receive Date: 20140320
  Receipt Date: 20140320
  Transmission Date: 20141002
  Serious: Yes (Hospitalization)
  Sender: FDA-Public Use
  Company Number: FK201400933

PATIENT
  Age: 4 Month
  Sex: Male

DRUGS (1)
  1. CYTARABINE [Suspect]
     Indication: ACUTE MYELOID LEUKAEMIA

REACTIONS (7)
  - Blood phosphorus increased [None]
  - Hypocalcaemia [None]
  - Irritability [None]
  - Tachycardia [None]
  - Hyperuricaemia [None]
  - Condition aggravated [None]
  - Electrocardiogram QT prolonged [None]
